FAERS Safety Report 23346058 (Version 1)
Quarter: 2023Q4

REPORT INFORMATION
  Report Type: Spontaneous
  Country: US (occurrence: None)
  Receive Date: 20231227
  Receipt Date: 20231227
  Transmission Date: 20240109
  Serious: No
  Sender: FDA-Public Use
  Company Number: None

PATIENT
  Age: 50 Year
  Sex: Female
  Weight: 94.5 kg

DRUGS (4)
  1. AIMOVIG [Suspect]
     Active Substance: ERENUMAB-AOOE
     Indication: Migraine
     Dates: start: 20231104, end: 20231227
  2. Ozembic [Concomitant]
  3. ATORVASTATIN [Concomitant]
  4. ometprazole [Concomitant]

REACTIONS (1)
  - Constipation [None]

NARRATIVE: CASE EVENT DATE: 20231216
